FAERS Safety Report 4492963-3 (Version None)
Quarter: 2004Q4

REPORT INFORMATION
  Report Type: 
  Country: None (occurrence: None)
  Receive Date: 20041102
  Receipt Date: 20040727
  Transmission Date: 20050328
  Serious: Yes (Death, Hospitalization)
  Sender: FDA-Public Use
  Company Number: F01200402201

PATIENT
  Age: 75 Year
  Sex: Male

DRUGS (5)
  1. (OXALIPLATIN) - SOLUTION - 130 MG/M2 [Suspect]
     Indication: COLORECTAL CANCER METASTATIC
     Dosage: 250 MG Q3W, INTRAVENOUS NOS
     Route: 042
     Dates: start: 20040705, end: 20040705
  2. (CAPECITABINE) - TABLET - 1000 MG/M2 [Suspect]
     Dosage: 4000 MG (1000 MG/M2 TWICE DAILY FROM D1 TO D14, Q3W)
     Route: 048
     Dates: start: 20040705, end: 20040714
  3. (BEVACIZUMAB OR PLACEBO) - SOLUTION - 1 UNIT [Suspect]
     Dosage: 1 UNIT Q3W, INTRAVENOUS NOS
     Route: 042
     Dates: start: 20040705, end: 20040705
  4. CONVERTIN (ENALAPRIL MALEATE) [Concomitant]
  5. NORMITEN (ATENOLOL) [Concomitant]

REACTIONS (5)
  - ATRIAL FIBRILLATION [None]
  - BLOOD CREATININE INCREASED [None]
  - DIARRHOEA [None]
  - FEBRILE NEUTROPENIA [None]
  - SEPTIC SHOCK [None]
